FAERS Safety Report 26045215 (Version 2)
Quarter: 2025Q4

REPORT INFORMATION
  Report Type: Spontaneous
  Country: BR (occurrence: BR)
  Receive Date: 20251114
  Receipt Date: 20251204
  Transmission Date: 20260117
  Serious: Yes (Other)
  Sender: ABBVIE
  Company Number: BR-ABBOTT-2025A-1404010

PATIENT
  Sex: Male
  Weight: 84 kg

DRUGS (2)
  1. DEPAKOTE [Suspect]
     Active Substance: DIVALPROEX SODIUM
     Indication: Epilepsy
     Route: 048
  2. DEPAKOTE [Suspect]
     Active Substance: DIVALPROEX SODIUM
     Indication: Epilepsy
     Route: 048

REACTIONS (7)
  - Dependence [Unknown]
  - Head discomfort [Unknown]
  - Confusional state [Unknown]
  - Speech disorder developmental [Unknown]
  - Epilepsy [Unknown]
  - Speech disorder [Unknown]
  - Drug dependence [Unknown]
